FAERS Safety Report 21334103 (Version 1)
Quarter: 2022Q3

REPORT INFORMATION
  Report Type: Report from Study
  Country: DE (occurrence: None)
  Receive Date: 20220914
  Receipt Date: 20220914
  Transmission Date: 20221027
  Serious: Yes (Death, Life-Threatening, Hospitalization)
  Sender: FDA-Public Use
  Company Number: DE-Merck Healthcare KGaA-9341785

PATIENT
  Age: 87 Year
  Sex: Male

DRUGS (2)
  1. BAVENCIO [Suspect]
     Active Substance: AVELUMAB
     Indication: Renal cell carcinoma
     Route: 042
     Dates: start: 20220714, end: 20220714
  2. BAVENCIO [Suspect]
     Active Substance: AVELUMAB
     Route: 042
     Dates: start: 20220728, end: 20220728

REACTIONS (2)
  - Diverticular perforation [Fatal]
  - Dyspnoea [Unknown]

NARRATIVE: CASE EVENT DATE: 20220731
